FAERS Safety Report 5800128-5 (Version None)
Quarter: 2008Q3

REPORT INFORMATION
  Report Type: 
  Country: None (occurrence: None)
  Receive Date: 20080703
  Receipt Date: 20080627
  Transmission Date: 20090109
  Serious: Yes (Hospitalization, Other)
  Sender: FDA-Public Use
  Company Number: US-ROCHE-533396

PATIENT
  Sex: Male
  Weight: 93 kg

DRUGS (15)
  1. ACCUTANE [Suspect]
     Dosage: REPORTED AS 60MG PO QD
     Route: 065
     Dates: start: 19930101, end: 19930521
  2. ACCUTANE [Suspect]
     Route: 065
     Dates: start: 19940309, end: 19940802
  3. ACCUTANE [Suspect]
     Dosage: REPORTED AS 40MG PO BID
     Route: 065
     Dates: start: 19940906, end: 19941004
  4. ACCUTANE [Suspect]
     Dosage: REPORTED AS 40 MG BID
     Route: 065
     Dates: start: 19950718, end: 19960102
  5. ACCUTANE [Suspect]
     Route: 065
     Dates: start: 19960422, end: 19961116
  6. ACCUTANE [Suspect]
     Route: 065
     Dates: start: 19980101
  7. ACCUTANE [Suspect]
     Dosage: THE PATIENT WAS TAKING ISOTRETINOIN 10 MG ONCE DAILY
     Route: 065
     Dates: start: 19980201
  8. ACCUTANE [Suspect]
     Dosage: REPORTED AS 20MG 3X WEEK
     Route: 065
     Dates: start: 19980522, end: 19981027
  9. ACCUTANE [Suspect]
     Dosage: REPORTED AS 20MG OD
     Route: 065
     Dates: start: 19990812, end: 20000303
  10. ACCUTANE [Suspect]
     Dosage: REPORTED AS 20MG QOD
     Route: 065
     Dates: start: 20000303, end: 20000803
  11. ACCUTANE [Suspect]
     Dosage: REPORTED AS 10MG QD
     Route: 065
     Dates: start: 20030505, end: 20030719
  12. ACCUTANE [Suspect]
     Route: 065
     Dates: start: 20031231, end: 20040225
  13. CELEXA [Concomitant]
     Indication: DEPRESSION
     Dosage: REPORTED AS ONCE DAILY
  14. LEVAQUIN [Concomitant]
     Indication: COLITIS
     Dosage: REPORTED AS NEEDED
  15. ASACOL [Concomitant]
     Indication: COLITIS
     Dosage: REPORTED AS TWO TIMES DAILY

REACTIONS (32)
  - ACNE [None]
  - ANAEMIA [None]
  - ARTHRALGIA [None]
  - BLOOD CHOLESTEROL INCREASED [None]
  - BLOOD TRIGLYCERIDES INCREASED [None]
  - BONE DISORDER [None]
  - CANDIDIASIS [None]
  - CHRONIC SINUSITIS [None]
  - COLITIS [None]
  - COLITIS ULCERATIVE [None]
  - DEPRESSION [None]
  - DRY SKIN [None]
  - FACIAL PALSY [None]
  - FOLLICULITIS [None]
  - FRACTURE [None]
  - GASTRIC ULCER [None]
  - GASTRITIS [None]
  - GASTROENTERITIS [None]
  - HEPATIC ENZYME INCREASED [None]
  - INFLAMMATORY BOWEL DISEASE [None]
  - IRRITABLE BOWEL SYNDROME [None]
  - LIGAMENT RUPTURE [None]
  - LIP DRY [None]
  - OBSESSIVE-COMPULSIVE DISORDER [None]
  - PEPTIC ULCER [None]
  - PROCTITIS [None]
  - PROCTOCOLITIS [None]
  - SLEEP APNOEA SYNDROME [None]
  - SUICIDE ATTEMPT [None]
  - TESTICULAR TORSION [None]
  - WEIGHT DECREASED [None]
  - WRIST FRACTURE [None]
